FAERS Safety Report 9079834 (Version 4)
Quarter: 2013Q2

REPORT INFORMATION
  Report Type: Spontaneous
  Country: CN (occurrence: CN)
  Receive Date: 20130215
  Receipt Date: 20130409
  Transmission Date: 20140414
  Serious: Yes (Other)
  Sender: FDA-Public Use
  Company Number: CN-GLAXOSMITHKLINE-B0867208A

PATIENT
  Age: 25 Year
  Sex: Male

DRUGS (8)
  1. SEROXAT [Suspect]
     Indication: ANXIETY
     Dosage: 10MG PER DAY
     Route: 048
     Dates: start: 201109
  2. SEROXAT [Suspect]
     Indication: ANXIETY
     Dosage: 20MG PER DAY
     Route: 048
     Dates: start: 201109, end: 201109
  3. SEROXAT [Suspect]
     Indication: ANXIETY
     Dosage: 30MG PER DAY
     Route: 048
     Dates: start: 201110, end: 201110
  4. SEROXAT [Suspect]
     Indication: ANXIETY
     Dosage: 40MG PER DAY
     Route: 048
     Dates: end: 201204
  5. ALPRAZOLAM [Concomitant]
     Indication: SEDATION
     Route: 065
     Dates: start: 201107
  6. ESTAZOLAM [Concomitant]
     Indication: SEDATION
     Route: 065
     Dates: start: 201107
  7. ANTIHISTAMINE [Concomitant]
     Indication: URTICARIA
     Dates: start: 201204
  8. AMCINONIDE [Concomitant]
     Indication: URTICARIA
     Dates: start: 201204

REACTIONS (8)
  - Haematochezia [Recovered/Resolved]
  - Diarrhoea [Recovered/Resolved]
  - Sensation of foreign body [Recovering/Resolving]
  - Pruritus [Recovering/Resolving]
  - Nasal congestion [Recovered/Resolved]
  - Increased upper airway secretion [Recovered/Resolved]
  - Dizziness [Recovered/Resolved]
  - Vomiting [Recovered/Resolved]
